FAERS Safety Report 16989563 (Version 3)
Quarter: 2020Q3

REPORT INFORMATION
  Report Type: Spontaneous
  Country: US (occurrence: US)
  Receive Date: 20191104
  Receipt Date: 20200911
  Transmission Date: 20201102
  Serious: No
  Sender: FDA-Public Use
  Company Number: US-PFIZER INC-2019474891

PATIENT
  Age: 53 Year
  Sex: Female
  Weight: 83.46 kg

DRUGS (5)
  1. LYRICA [Suspect]
     Active Substance: PREGABALIN
     Indication: PAIN
     Dosage: 75 MG, 1X/DAY
     Route: 048
  2. LYRICA [Suspect]
     Active Substance: PREGABALIN
     Indication: BACK DISORDER
     Dosage: 1 DF, AS NEEDED
     Route: 048
     Dates: start: 2018
  3. LYRICA [Suspect]
     Active Substance: PREGABALIN
     Indication: FIBROMYALGIA
     Dosage: 75 MG, 2X/DAY
     Route: 048
  4. SOMA [Concomitant]
     Active Substance: CARISOPRODOL
     Dosage: UNK
  5. CARISOPRODOL. [Concomitant]
     Active Substance: CARISOPRODOL
     Dosage: UNK

REACTIONS (8)
  - Pain [Unknown]
  - Feeling abnormal [Unknown]
  - Somnolence [Unknown]
  - Therapeutic product effect incomplete [Unknown]
  - Expired product administered [Unknown]
  - Cognitive disorder [Unknown]
  - Body height decreased [Unknown]
  - Intentional product misuse [Unknown]

NARRATIVE: CASE EVENT DATE: 2018
